FAERS Safety Report 6681147-6 (Version None)
Quarter: 2010Q2

REPORT INFORMATION
  Report Type: 
  Country: None (occurrence: None)
  Receive Date: 20100412
  Receipt Date: 20100325
  Transmission Date: 20101027
  Serious: Yes (Disabling, Other)
  Sender: FDA-Public Use
  Company Number: GB-ACCORD-004453

PATIENT
  Age: 61 Year
  Sex: Male
  Weight: 80 kg

DRUGS (2)
  1. SIMVASTATIN [Suspect]
     Indication: BLOOD CHOLESTEROL
     Dosage: 20.00-MG/ORAL
     Route: 048
     Dates: start: 19950101, end: 20090201
  2. BISOPROLOL FUMARATE [Concomitant]

REACTIONS (3)
  - GRANULOMA [None]
  - LYMPHOID TISSUE HYPERPLASIA [None]
  - SKIN LESION [None]
